FAERS Safety Report 22169217 (Version 2)
Quarter: 2023Q2

REPORT INFORMATION
  Report Type: Report from Study
  Country: BR (occurrence: BR)
  Receive Date: 20230404
  Receipt Date: 20230505
  Transmission Date: 20230721
  Serious: Yes (Hospitalization)
  Sender: FDA-Public Use
  Company Number: BR-BoehringerIngelheim-2023-BI-228212

PATIENT
  Age: 41 Year
  Sex: Female
  Weight: 70 kg

DRUGS (11)
  1. ATROVENT [Suspect]
     Active Substance: IPRATROPIUM BROMIDE
     Indication: Product used for unknown indication
     Dosage: USED ALONG WITH BEROTEC
     Route: 055
  2. BEROTEC [Suspect]
     Active Substance: FENOTEROL HYDROBROMIDE
     Indication: Bronchiectasis
     Dosage: 100 MG/200 MG.
     Dates: end: 202302
  3. BEROTEC [Suspect]
     Active Substance: FENOTEROL HYDROBROMIDE
     Dosage: FOUR DROPS,
     Route: 048
  4. FENOTEROL HYDROBROMIDE [Suspect]
     Active Substance: FENOTEROL HYDROBROMIDE
     Indication: Product used for unknown indication
     Dosage: DUOVENT, AEROSOL, 2 PUFFS A DAY, BUT USE MORE WHEN NEEDED
     Route: 048
     Dates: start: 20230307
  5. FENOTEROL HYDROBROMIDE [Suspect]
     Active Substance: FENOTEROL HYDROBROMIDE
     Dosage: DUOVENT, AEROSOL, 2 PUFFS A DAY, BUT USE MORE WHEN NEEDED
     Route: 048
     Dates: start: 20230307
  6. ALBUTEROL [Suspect]
     Active Substance: ALBUTEROL
     Indication: Product used for unknown indication
     Dosage: SALBUTAMOL 5MG/ML, INHALED (NEBULIZED), USE EVERY 6 HOURS
     Route: 055
  7. ALBUTEROL [Suspect]
     Active Substance: ALBUTEROL
     Indication: Bronchiectasis
     Route: 055
  8. ALBUTEROL [Suspect]
     Active Substance: ALBUTEROL
     Indication: Drug therapy
     Dosage: AEROLIN, 100 MCG, AEROSOL USE
  9. PREDNISOLONE [Suspect]
     Active Substance: PREDNISOLONE
     Indication: Drug therapy
     Dosage: PREDNISOLONE 40MG, TABLETS, ONCE DAILY
     Route: 048
  10. BECLOMETHASONE DIPROPIONATE\FORMOTEROL FUMARATE\GLYCOPYRROLATE [Concomitant]
     Active Substance: BECLOMETHASONE DIPROPIONATE\FORMOTEROL FUMARATE\GLYCOPYRROLATE
     Indication: Bronchiectasis
  11. Acetilciste?na [Concomitant]
     Indication: Product used for unknown indication

REACTIONS (18)
  - Lung disorder [Unknown]
  - Dyspnoea [Unknown]
  - Dyspnoea [Unknown]
  - Fatigue [Unknown]
  - Tremor [Unknown]
  - Pneumonia [Unknown]
  - Swelling [Unknown]
  - Tachycardia [Unknown]
  - Pneumonia [Unknown]
  - Tremor [Unknown]
  - Condition aggravated [Unknown]
  - Intentional product use issue [Unknown]
  - Drug ineffective [Unknown]
  - Expired product administered [Unknown]
  - Heart rate increased [Unknown]
  - Drug ineffective [Unknown]
  - Asthma [Unknown]
  - Respiratory disorder [Unknown]

NARRATIVE: CASE EVENT DATE: 20230318
